FAERS Safety Report 24204584 (Version 1)
Quarter: 2024Q3

REPORT INFORMATION
  Report Type: Spontaneous
  Country: US (occurrence: US)
  Receive Date: 20240813
  Receipt Date: 20240813
  Transmission Date: 20241017
  Serious: No
  Sender: BRISTOL MYERS SQUIBB
  Company Number: US-BRISTOL-MYERS SQUIBB COMPANY-2024-119082

PATIENT
  Age: 60 Year
  Sex: Female
  Weight: 72.8 kg

DRUGS (2)
  1. NULOJIX [Suspect]
     Active Substance: BELATACEPT
     Indication: Renal transplant
     Route: 042
  2. NULOJIX [Suspect]
     Active Substance: BELATACEPT
     Route: 042

REACTIONS (1)
  - Weight increased [Unknown]
